FAERS Safety Report 6259968-3 (Version None)
Quarter: 2009Q3

REPORT INFORMATION
  Report Type: 
  Country: None (occurrence: None)
  Receive Date: 20090706
  Receipt Date: 20090617
  Transmission Date: 20100115
  Serious: Yes (Hospitalization)
  Sender: FDA-Public Use
  Company Number: A03200902792

PATIENT
  Sex: Female

DRUGS (1)
  1. OFORTA - (FLUDARABINE PHOSPHATE) [Suspect]

REACTIONS (3)
  - MUCOSAL INFLAMMATION [None]
  - PULMONARY OEDEMA [None]
  - REVERSIBLE POSTERIOR LEUKOENCEPHALOPATHY SYNDROME [None]
